FAERS Safety Report 15778510 (Version 1)
Quarter: 2018Q4

REPORT INFORMATION
  Report Type: Other
  Country: US (occurrence: US)
  Receive Date: 20181231
  Receipt Date: 20181231
  Transmission Date: 20190205
  Serious: Yes (Hospitalization)
  Sender: FDA-Public Use
  Company Number: US-CVS-2060726

PATIENT
  Age: 87 Year
  Sex: Female

DRUGS (3)
  1. CVS DIPHENHYDRAMINE HCL [Suspect]
     Active Substance: DIPHENHYDRAMINE HYDROCHLORIDE
     Route: 048
     Dates: start: 20181215, end: 20181215
  2. LEVOTHYROXINE. [Concomitant]
     Active Substance: LEVOTHYROXINE
  3. QUINIPRIL 40MG, VERAPAMIL 240MG, PORASSIUM CHLORIDE, ISOSORBIDE, ATORV [Concomitant]

REACTIONS (2)
  - Dysarthria [None]
  - Loss of consciousness [None]
